FAERS Safety Report 13646917 (Version 1)
Quarter: 2017Q2

REPORT INFORMATION
  Report Type: Spontaneous
  Country: US (occurrence: US)
  Receive Date: 20170613
  Receipt Date: 20170613
  Transmission Date: 20170830
  Serious: Yes (Other)
  Sender: FDA-Public Use
  Company Number: US-REGENERON PHARMACEUTICALS, INC.-2017-16923

PATIENT

DRUGS (1)
  1. EYLEA [Suspect]
     Active Substance: AFLIBERCEPT
     Indication: RETINAL VEIN OCCLUSION
     Dosage: 2 MG, UNK
     Route: 031
     Dates: start: 20170530, end: 20170530

REACTIONS (2)
  - Endophthalmitis [Unknown]
  - Vitrectomy [Unknown]

NARRATIVE: CASE EVENT DATE: 20170603
